FAERS Safety Report 16935492 (Version 1)
Quarter: 2019Q4

REPORT INFORMATION
  Report Type: Spontaneous
  Country: US (occurrence: US)
  Receive Date: 20191018
  Receipt Date: 20191018
  Transmission Date: 20200122
  Serious: Yes (Hospitalization, Other)
  Sender: FDA-Public Use
  Company Number: US-VELOXIS PHARMACEUTICALS-2019VELUS-000574

PATIENT
  Age: 51 Year
  Sex: Female

DRUGS (12)
  1. ENVARSUS XR [Interacting]
     Active Substance: TACROLIMUS
     Indication: IMMUNOSUPPRESSANT DRUG THERAPY
     Dosage: 13 MILLIGRAM, Q12H
     Dates: start: 2016, end: 2016
  2. ENVARSUS XR [Interacting]
     Active Substance: TACROLIMUS
     Dosage: 17 MILLIGRAM, Q12H
     Dates: start: 2016, end: 2016
  3. ENVARSUS XR [Interacting]
     Active Substance: TACROLIMUS
     Dosage: TARGET TROUGH LEVEL OF 10?12 MG/DL
     Dates: start: 201512, end: 2016
  4. SULFAMETHOXAZOLE AND TRIMETHOPRIM [Suspect]
     Active Substance: SULFAMETHOXAZOLE\TRIMETHOPRIM
     Indication: ANTIFUNGAL PROPHYLAXIS
     Dosage: 1 DF, QD
     Dates: start: 201512, end: 2016
  5. ANTITHYMOCYTE IMMUNOGLOBULIN [Suspect]
     Active Substance: THYMOCYTE IMMUNE GLOBULIN NOS
     Indication: IMMUNOSUPPRESSANT DRUG THERAPY
     Dosage: 3 DOSES OF 100 MG (1.5 MG/KG)
     Route: 042
     Dates: start: 201512
  6. PREDNISONE. [Interacting]
     Active Substance: PREDNISONE
     Indication: IMMUNOSUPPRESSANT DRUG THERAPY
     Dosage: CONTINUED TO BE TAPERED
     Dates: start: 201512, end: 2016
  7. ENVARSUS XR [Interacting]
     Active Substance: TACROLIMUS
     Dosage: TARGET THE GOAL TROUGH OF 8?10 MG/DL
     Dates: end: 2016
  8. VALGANCICLOVIR. [Interacting]
     Active Substance: VALGANCICLOVIR
     Indication: ANTIVIRAL PROPHYLAXIS
     Dosage: 450 MILLIGRAM, 48 HOUR
     Dates: start: 201512, end: 2016
  9. ENVARSUS XR [Suspect]
     Active Substance: TACROLIMUS
     Indication: RENAL TRANSPLANT
     Dosage: TAC TROUGH LEVEL WAS REDUCED TO 6?7 NG/DL
     Dates: start: 2016, end: 2016
  10. MYCOPHENOLATE MOFETIL. [Interacting]
     Active Substance: MYCOPHENOLATE MOFETIL
     Indication: IMMUNOSUPPRESSANT DRUG THERAPY
     Dosage: 1 GRAM, Q12H
     Route: 048
     Dates: start: 201512, end: 2016
  11. MYCOPHENOLATE MOFETIL. [Interacting]
     Active Substance: MYCOPHENOLATE MOFETIL
     Dosage: 500 MILLIGRAM, Q12H
     Route: 048
     Dates: start: 2016, end: 2016
  12. PREDNISONE. [Interacting]
     Active Substance: PREDNISONE
     Dosage: 5 MILLIGRAM, QD
     Dates: start: 2016, end: 2016

REACTIONS (6)
  - Hyperkalaemia [Unknown]
  - Tremor [Unknown]
  - Drug interaction [Recovered/Resolved]
  - Bone marrow failure [Recovered/Resolved]
  - Bone marrow toxicity [Recovered/Resolved]
  - Neutropenia [Recovered/Resolved]

NARRATIVE: CASE EVENT DATE: 2016
